FAERS Safety Report 10017004 (Version 1)
Quarter: 2014Q1

REPORT INFORMATION
  Report Type: Spontaneous
  Country: US (occurrence: US)
  Receive Date: 20140318
  Receipt Date: 20140318
  Transmission Date: 20141002
  Serious: No
  Sender: FDA-Public Use
  Company Number: US-BIOGENIDEC-2014BI024763

PATIENT
  Age: 43 Year
  Sex: Female

DRUGS (2)
  1. TYSABRI [Suspect]
     Indication: MULTIPLE SCLEROSIS
     Route: 042
     Dates: start: 20080911, end: 20111104
  2. TYSABRI [Suspect]
     Indication: MULTIPLE SCLEROSIS
     Route: 042
     Dates: start: 20130218

REACTIONS (6)
  - Poor venous access [Recovered/Resolved]
  - Anxiety [Recovered/Resolved with Sequelae]
  - Injection site pain [Recovered/Resolved with Sequelae]
  - Multiple sclerosis relapse [Recovered/Resolved]
  - Fatigue [Recovered/Resolved with Sequelae]
  - Malaise [Recovered/Resolved]
